FAERS Safety Report 9476357 (Version 2)
Quarter: 2013Q3

REPORT INFORMATION
  Report Type: Report from Study
  Country: JP (occurrence: JP)
  Receive Date: 20130826
  Receipt Date: 20130917
  Transmission Date: 20140515
  Serious: Yes (Death, Hospitalization)
  Sender: FDA-Public Use
  Company Number: JP-ROCHE-1264345

PATIENT
  Age: 62 Year
  Sex: Male
  Weight: 52 kg

DRUGS (5)
  1. METHOXY POLYETHYLENE GLYCOL-EPOETIN BETA [Suspect]
     Indication: NEPHROGENIC ANAEMIA
     Route: 042
     Dates: start: 20120723, end: 20121224
  2. ONEALFA [Concomitant]
     Route: 048
     Dates: end: 20130127
  3. MICARDIS [Concomitant]
     Route: 048
     Dates: end: 20130128
  4. PLETAAL [Concomitant]
     Route: 048
     Dates: end: 20130128
  5. NORVASC [Concomitant]
     Route: 048
     Dates: end: 20130128

REACTIONS (2)
  - Small intestinal perforation [Fatal]
  - Fat embolism [Recovering/Resolving]
